FAERS Safety Report 6252470-4 (Version None)
Quarter: 2009Q2

REPORT INFORMATION
  Report Type: 
  Country: None (occurrence: None)
  Receive Date: 20090629
  Receipt Date: 20090616
  Transmission Date: 20091009
  Serious: Yes (Hospitalization)
  Sender: FDA-Public Use
  Company Number: 236724K09USA

PATIENT
  Age: 34 Year
  Sex: Female
  Weight: 72 kg

DRUGS (5)
  1. REBIF [Suspect]
     Indication: MULTIPLE SCLEROSIS
     Dosage: 44 MCG, 3 IN 1 WEEKS, SUBCUTANEOUS
     Route: 058
     Dates: start: 20060207
  2. PROVIGIL [Concomitant]
  3. PAXIL [Concomitant]
  4. XANAX [Concomitant]
  5. KLONOPIN [Concomitant]

REACTIONS (5)
  - BLOOD PRESSURE INCREASED [None]
  - CARDIAC DISORDER [None]
  - CORONARY ARTERY OCCLUSION [None]
  - MUSCLE SPASMS [None]
  - MYOCARDIAL INFARCTION [None]
